FAERS Safety Report 13947750 (Version 2)
Quarter: 2017Q3

REPORT INFORMATION
  Report Type: Spontaneous
  Country: FR (occurrence: FR)
  Receive Date: 20170908
  Receipt Date: 20170921
  Transmission Date: 20171128
  Serious: Yes (Death)
  Sender: FDA-Public Use
  Company Number: FR-SUN PHARMACEUTICAL INDUSTRIES LTD-2017RR-149221

PATIENT

DRUGS (1)
  1. SONIDEGIB 50 MG/ML, POUDRE ET SOLVANT POUR SUSPENSION BUVABLE [Suspect]
     Active Substance: SONIDEGIB
     Indication: MEDULLOBLASTOMA
     Dosage: 800 MG, DAILY
     Route: 048

REACTIONS (1)
  - No adverse event [Unknown]
